FAERS Safety Report 16931038 (Version 1)
Quarter: 2019Q4

REPORT INFORMATION
  Report Type: Spontaneous
  Country: US (occurrence: US)
  Receive Date: 20191017
  Receipt Date: 20191017
  Transmission Date: 20200122
  Serious: Yes (Other)
  Sender: FDA-Public Use
  Company Number: US-TEVA-2019-US-1123336

PATIENT
  Sex: Female

DRUGS (2)
  1. RALOXIFENE HYDROCHLORIDE. [Suspect]
     Active Substance: RALOXIFENE HYDROCHLORIDE
     Indication: OSTEOPOROSIS
     Route: 065
     Dates: start: 2017, end: 20191006
  2. LEVOTHYROXINE. [Concomitant]
     Active Substance: LEVOTHYROXINE

REACTIONS (2)
  - Seizure [Unknown]
  - Monoplegia [Unknown]

NARRATIVE: CASE EVENT DATE: 20190927
